FAERS Safety Report 9917747 (Version 1)
Quarter: 2014Q1

REPORT INFORMATION
  Report Type: Spontaneous
  Country: US (occurrence: US)
  Receive Date: 20140221
  Receipt Date: 20140221
  Transmission Date: 20141002
  Serious: Yes (Other)
  Sender: FDA-Public Use
  Company Number: PHHY2014US018731

PATIENT
  Age: 60 Year
  Sex: Female

DRUGS (21)
  1. MYCOPHENOLIC ACID [Suspect]
     Indication: RENAL TRANSPLANT
  2. MYCOPHENOLIC ACID [Suspect]
     Indication: IMMUNOSUPPRESSION
  3. THYMOGLOBULIN [Suspect]
     Indication: IMMUNOSUPPRESSION
     Dosage: 1.5 MG/KG, 5 DOSES
  4. THYMOGLOBULIN [Suspect]
     Dosage: 1.5 MG/KG, 7 DOSES
  5. METHYLPREDNISOLONE [Suspect]
     Indication: IMMUNOSUPPRESSION
     Dosage: 2.5 G
  6. METHYLPREDNISOLONE [Suspect]
     Dosage: 500 MG, 3 DOSES
  7. TACROLIMUS [Suspect]
     Indication: IMMUNOSUPPRESSION
  8. PREDNISONE [Suspect]
     Indication: IMMUNOSUPPRESSION
     Dosage: 5 MG, DAILY
  9. ISONIAZID [Suspect]
     Indication: TUBERCULOSIS
  10. RIFAMPICIN [Suspect]
     Indication: TUBERCULOSIS
  11. RIFABUTIN [Suspect]
     Indication: TUBERCULOSIS
  12. CLARITHROMYCIN [Concomitant]
  13. ETHAMBUTOL [Concomitant]
     Indication: TUBERCULOSIS
  14. TRIMETHOPRIM SULFAMETHOXAZOLE [Concomitant]
     Indication: PROPHYLAXIS URINARY TRACT INFECTION
  15. TRIMETHOPRIM SULFAMETHOXAZOLE [Concomitant]
     Indication: PROPHYLAXIS
  16. CORTICOSTEROIDS [Concomitant]
     Indication: ARTHROPATHY
  17. VALGANCICLOVIR [Concomitant]
     Indication: ANTIVIRAL PROPHYLAXIS
  18. NYSTATIN [Concomitant]
     Indication: PROPHYLAXIS
  19. PYRAZINAMIDE [Concomitant]
     Indication: TUBERCULOSIS
  20. MOXIFLOXACIN [Concomitant]
  21. ETHIONAMIDE [Concomitant]

REACTIONS (14)
  - Transplant rejection [Unknown]
  - Cytomegalovirus infection [Unknown]
  - Epstein-Barr virus infection [Unknown]
  - Tuberculosis [Unknown]
  - Tenderness [Unknown]
  - Joint swelling [Unknown]
  - Joint effusion [Unknown]
  - Gait disturbance [Unknown]
  - Pyrexia [Unknown]
  - Pain [Unknown]
  - Skin warm [Unknown]
  - Oedema peripheral [Unknown]
  - Synovitis [Unknown]
  - Drug resistance [Unknown]
